FAERS Safety Report 9561750 (Version 1)
Quarter: 2013Q3

REPORT INFORMATION
  Report Type: Spontaneous
  Country: US (occurrence: US)
  Receive Date: 20130927
  Receipt Date: 20130927
  Transmission Date: 20140515
  Serious: No
  Sender: FDA-Public Use
  Company Number: US-BIOGENIDEC-2013BI062942

PATIENT
  Sex: Female

DRUGS (2)
  1. TECFIDERA [Suspect]
     Indication: MULTIPLE SCLEROSIS
     Dates: start: 20130629
  2. AVONEX [Concomitant]
     Route: 030

REACTIONS (3)
  - Vision blurred [Unknown]
  - Balance disorder [Unknown]
  - Dizziness [Unknown]
